FAERS Safety Report 21595426 (Version 1)
Quarter: 2022Q4

REPORT INFORMATION
  Report Type: Spontaneous
  Country: US (occurrence: US)
  Receive Date: 20221115
  Receipt Date: 20221115
  Transmission Date: 20230113
  Serious: Yes (Hospitalization, Other)
  Sender: FDA-Public Use
  Company Number: US-CIPLA (EU) LIMITED-2022US06578

PATIENT
  Age: 7 Year
  Sex: Male

DRUGS (1)
  1. ALBUTEROL [Suspect]
     Active Substance: ALBUTEROL
     Dosage: UNK
     Route: 065

REACTIONS (5)
  - Status asthmaticus [Unknown]
  - Treatment noncompliance [Unknown]
  - Respiratory symptom [Unknown]
  - Influenza [Unknown]
  - General physical health deterioration [Unknown]
